FAERS Safety Report 4781121-0 (Version None)
Quarter: 2005Q3

REPORT INFORMATION
  Report Type: 
  Country: None (occurrence: None)
  Receive Date: 20050926
  Receipt Date: 20050926
  Transmission Date: 20060218
  Serious: Yes (Hospitalization)
  Sender: FDA-Public Use
  Company Number: None

PATIENT
  Sex: Female
  Weight: 87.7 kg

DRUGS (3)
  1. ADRIAMYCIN PFS [Suspect]
     Indication: BREAST CANCER
     Dosage: SEE IMAGE
     Dates: start: 20050909
  2. CYTOXAN [Suspect]
     Dosage: SEE IMAGE
  3. G-CSF [Suspect]
     Dosage: SEE IMAGE
     Dates: start: 20050915, end: 20050921

REACTIONS (6)
  - ASTHMA [None]
  - CATHETER RELATED COMPLICATION [None]
  - COUGH [None]
  - DEEP VEIN THROMBOSIS [None]
  - PULMONARY EMBOLISM [None]
  - UPPER RESPIRATORY TRACT INFECTION [None]
